FAERS Safety Report 8215816-3 (Version None)
Quarter: 2012Q1

REPORT INFORMATION
  Report Type: 
  Country: None (occurrence: None)
  Receive Date: 20120316
  Receipt Date: 20120301
  Transmission Date: 20120608
  Serious: Yes (Hospitalization)
  Sender: FDA-Public Use
  Company Number: JP-ROCHE-639708

PATIENT
  Sex: Female
  Weight: 45 kg

DRUGS (20)
  1. ACTEMRA [Suspect]
     Indication: RHEUMATOID ARTHRITIS
     Route: 041
     Dates: start: 20090114, end: 20090114
  2. ACTEMRA [Suspect]
     Route: 041
     Dates: start: 20090415, end: 20090415
  3. ACTEMRA [Suspect]
     Route: 041
  4. PREDNISOLONE [Suspect]
     Route: 048
  5. ALENDRONATE SODIUM [Concomitant]
     Indication: OSTEOPOROSIS
     Dosage: DRUG REPORTED AS BONALON 35MG
     Route: 048
  6. SODIUM AZULENE SULFONATE [Concomitant]
     Dates: start: 20100106, end: 20100110
  7. AMLODIPINE [Concomitant]
     Indication: HYPERTENSION
     Dosage: DRUG REPORTED AS: AMLODIN(AMLODIPINE BESILATE)
     Route: 048
  8. NOVORAPID [Concomitant]
     Indication: TYPE 1 DIABETES MELLITUS
     Dosage: DRUG NAME REPORTED AS: NOVORAPID(INSULIN ASPART(GENETICAL RECOMBINATION))
     Route: 058
  9. PREDNISOLONE [Suspect]
     Indication: PRODUCT USED FOR UNKNOWN INDICATION
     Dosage: DOSE FORM: PERORAL AGENT
     Route: 048
  10. ATELEC [Concomitant]
     Dosage: DOSE : 5
     Route: 048
  11. ACTEMRA [Suspect]
     Route: 041
     Dates: start: 20090218, end: 20090218
  12. ACTEMRA [Suspect]
     Route: 041
     Dates: start: 20090318, end: 20090318
  13. NABOAL [Concomitant]
     Dosage: DRUG REPORTED AS NABOAL SR
     Route: 048
  14. LANTUS [Concomitant]
     Indication: TYPE 1 DIABETES MELLITUS
     Dosage: DRUG REPORTED AS LANTUS;
     Route: 058
  15. ACTEMRA [Suspect]
     Route: 041
     Dates: start: 20090513, end: 20090513
  16. ACTEMRA [Suspect]
     Route: 041
     Dates: start: 20090708, end: 20090708
  17. ACTEMRA [Suspect]
     Route: 041
     Dates: start: 20090610, end: 20090610
  18. ISONIAZID TAB [Suspect]
     Indication: ANTIBIOTIC PROPHYLAXIS
     Dosage: DOSE FORM: PERORAL AGENT
     Route: 048
     Dates: start: 20081217, end: 20090313
  19. SODIUM AZULENE SULFONATE [Concomitant]
     Indication: GASTRITIS
     Dosage: DRUG REPORTED AS: GLORIAMIN(SODIUM AZULENE SULFONATE_L-GLUTAMINE) DOSE FORM: GRANULATED POWDER
     Route: 048
  20. AZULFIDINE [Concomitant]
     Dosage: DOSE : 250
     Route: 048

REACTIONS (4)
  - BRONCHITIS [None]
  - BRONCHIOLITIS [None]
  - LIVER DISORDER [None]
  - HEPATIC ENZYME INCREASED [None]
